FAERS Safety Report 5582989-0 (Version None)
Quarter: 2008Q1

REPORT INFORMATION
  Report Type: 
  Country: None (occurrence: None)
  Receive Date: 20080107
  Receipt Date: 20080102
  Transmission Date: 20080703
  Serious: Yes (Other)
  Sender: FDA-Public Use
  Company Number: FR-JNJFOC-20080100648

PATIENT
  Age: 32 Year
  Sex: Male

DRUGS (9)
  1. REMICADE [Suspect]
     Route: 042
  2. REMICADE [Suspect]
     Route: 042
  3. REMICADE [Suspect]
     Route: 042
  4. REMICADE [Suspect]
     Route: 042
  5. REMICADE [Suspect]
     Route: 042
  6. REMICADE [Suspect]
     Indication: CROHN'S DISEASE
     Route: 042
  7. IMUREL [Suspect]
     Route: 048
  8. IMUREL [Suspect]
     Indication: CROHN'S DISEASE
     Dosage: 150-175 MG DAILY
     Route: 048
  9. CORTICOIDS [Concomitant]

REACTIONS (1)
  - TESTIS CANCER [None]
